FAERS Safety Report 5161784-0 (Version None)
Quarter: 2006Q4

REPORT INFORMATION
  Report Type: 
  Country: None (occurrence: None)
  Receive Date: 20061121
  Receipt Date: 20061108
  Transmission Date: 20070319
  Serious: Yes (Hospitalization)
  Sender: FDA-Public Use
  Company Number: 2006138505

PATIENT
  Age: 5 Year
  Sex: Male

DRUGS (1)
  1. GENOTROPIN [Suspect]
     Dosage: 8 MG, SUBCUTANEOUS
     Route: 058

REACTIONS (2)
  - ACCIDENTAL OVERDOSE [None]
  - DEVICE MALFUNCTION [None]
